FAERS Safety Report 10370753 (Version 1)
Quarter: 2014Q3

REPORT INFORMATION
  Report Type: Spontaneous
  Country: US (occurrence: None)
  Receive Date: 20140806
  Receipt Date: 20140806
  Transmission Date: 20150326
  Serious: Yes (Other)
  Sender: FDA-Public Use
  Company Number: 1937531-2014-00001

PATIENT

DRUGS (1)
  1. CAL STAT PLUS ANTISEPTIC [Suspect]
     Active Substance: ISOPROPYL ALCOHOL

REACTIONS (1)
  - Incorrect route of drug administration [None]

NARRATIVE: CASE EVENT DATE: 20140214
